FAERS Safety Report 5146955-1 (Version None)
Quarter: 2006Q4

REPORT INFORMATION
  Report Type: 
  Country: None (occurrence: None)
  Receive Date: 20061109
  Receipt Date: 20060302
  Transmission Date: 20070319
  Serious: Yes (Hospitalization, Other)
  Sender: FDA-Public Use
  Company Number: US-ELI_LILLY_AND_COMPANY-US200605001990

PATIENT
  Age: 47 Year
  Sex: Male
  Weight: 95.238 kg

DRUGS (1)
  1. ZYPREXA [Suspect]
     Indication: DEPRESSION
     Dosage: 10 MG, UNKNOWN
     Route: 065
     Dates: start: 19980901, end: 20000801

REACTIONS (4)
  - DIABETES MELLITUS [None]
  - HAEMORRHAGE [None]
  - METABOLIC DISORDER [None]
  - OBESITY [None]
